FAERS Safety Report 9379845 (Version 1)
Quarter: 2013Q3

REPORT INFORMATION
  Report Type: Spontaneous
  Country: US (occurrence: US)
  Receive Date: 20130702
  Receipt Date: 20130702
  Transmission Date: 20140515
  Serious: No
  Sender: FDA-Public Use
  Company Number: US-ASTRAZENECA-2013SE41912

PATIENT
  Age: 68 Year
  Sex: Male
  Weight: 93 kg

DRUGS (8)
  1. CRESTOR [Suspect]
     Indication: MYOCARDIAL INFARCTION
     Route: 048
     Dates: start: 201301, end: 201305
  2. CRESTOR [Suspect]
     Indication: MYOCARDIAL INFARCTION
     Route: 048
     Dates: start: 201305
  3. LISINOPRIL [Suspect]
     Indication: CARDIAC DISORDER
     Route: 065
     Dates: start: 201301
  4. METOPROLOL SUCCINATE [Suspect]
     Indication: MYOCARDIAL INFARCTION
     Route: 065
     Dates: start: 201301
  5. METOPROLOL SUCCINATE [Suspect]
     Indication: CARDIAC DISORDER
     Route: 065
     Dates: start: 201301
  6. OMEPRAZOLE [Suspect]
     Indication: GASTROOESOPHAGEAL REFLUX DISEASE
     Route: 048
     Dates: start: 201301
  7. CLOPIDOGREL [Concomitant]
     Indication: CARDIAC DISORDER
     Dates: start: 201301
  8. ASPIRIN [Concomitant]
     Dates: start: 201301

REACTIONS (3)
  - Nasopharyngitis [Unknown]
  - Blood cholesterol decreased [Unknown]
  - Off label use [Unknown]
